FAERS Safety Report 19404702 (Version 3)
Quarter: 2021Q3

REPORT INFORMATION
  Report Type: Report from Study
  Country: US (occurrence: US)
  Receive Date: 20210611
  Receipt Date: 20210928
  Transmission Date: 20211014
  Serious: No
  Sender: FDA-Public Use
  Company Number: NVSC2021US126382

PATIENT
  Sex: Male

DRUGS (1)
  1. COSENTYX [Suspect]
     Active Substance: SECUKINUMAB
     Indication: PSORIASIS
     Dosage: UNK, QW
     Route: 058

REACTIONS (5)
  - Dysphonia [Unknown]
  - Gastrooesophageal reflux disease [Unknown]
  - Wrong technique in product usage process [Unknown]
  - Oropharyngeal pain [Unknown]
  - Nasopharyngitis [Unknown]
